FAERS Safety Report 20436435 (Version 1)
Quarter: 2022Q1

REPORT INFORMATION
  Report Type: Spontaneous
  Country: FR (occurrence: FR)
  Receive Date: 20220207
  Receipt Date: 20220207
  Transmission Date: 20220424
  Serious: Yes (Congenital Anomaly, Other)
  Sender: FDA-Public Use
  Company Number: FR-ABBVIE-22K-056-4264613-00

PATIENT
  Sex: Female
  Weight: 2.77 kg

DRUGS (1)
  1. VALPROATE SODIUM [Suspect]
     Active Substance: VALPROATE SODIUM
     Indication: Maternal exposure timing unspecified
     Route: 064

REACTIONS (23)
  - Foetal anticonvulsant syndrome [Unknown]
  - Limb malformation [Unknown]
  - Psychomotor retardation [Unknown]
  - Dyspraxia [Unknown]
  - Dysmorphism [Unknown]
  - Cognitive disorder [Unknown]
  - Strabismus [Unknown]
  - Adjustment disorder [Unknown]
  - Communication disorder [Unknown]
  - Dysgraphia [Unknown]
  - Haemangioma congenital [Unknown]
  - Foot deformity [Unknown]
  - Language disorder [Unknown]
  - Hypertonia neonatal [Unknown]
  - Musculoskeletal stiffness [Unknown]
  - Disturbance in social behaviour [Unknown]
  - Attention deficit hyperactivity disorder [Unknown]
  - Executive dysfunction [Unknown]
  - Disturbance in attention [Unknown]
  - Learning disorder [Unknown]
  - Amblyopia [Unknown]
  - Developmental delay [Unknown]
  - Foetal exposure during pregnancy [Unknown]

NARRATIVE: CASE EVENT DATE: 20071201
